FAERS Safety Report 7690354-5 (Version None)
Quarter: 2011Q3

REPORT INFORMATION
  Report Type: 
  Country: None (occurrence: None)
  Receive Date: 20110812
  Receipt Date: 20110802
  Transmission Date: 20111222
  Serious: Yes (Other)
  Sender: FDA-Public Use
  Company Number: HA11-128-AE

PATIENT
  Age: 68 Year
  Sex: Female
  Weight: 62 kg

DRUGS (16)
  1. CODEINE TABLET [Concomitant]
  2. METFORMIN HYDROCHLORIDE [Concomitant]
  3. GLICLAZIDE TABLET [Concomitant]
  4. LEVOTHYROXINE  SODIUM (PURAN T4) TABLET [Concomitant]
  5. PARACETAMOL TABLET [Concomitant]
  6. ^ADITIL^ [Concomitant]
  7. NAPROXEN [Suspect]
     Indication: OSTEOARTHRITIS
     Dosage: HIGH DOSE, 3X/DAY, ORAL
     Route: 048
     Dates: start: 20091124, end: 20101128
  8. NAPROXEN [Suspect]
     Indication: RHEUMATOID ARTHRITIS
     Dosage: HIGH DOSE, 3X/DAY, ORAL
     Route: 048
     Dates: start: 20091124, end: 20101128
  9. CELECOXIB;IBUPROFEN/NAPROXEN;PLACEBO (UNKNOWN) [Suspect]
     Indication: OSTEOARTHRITIS
     Dosage: HIGH DOSE, 3X/DAY, ORAL
     Route: 048
     Dates: start: 20091124, end: 20101128
  10. CELECOXIB;IBUPROFEN/NAPROXEN;PLACEBO (UNKNOWN) [Suspect]
     Indication: RHEUMATOID ARTHRITIS
     Dosage: HIGH DOSE, 3X/DAY, ORAL
     Route: 048
     Dates: start: 20091124, end: 20101128
  11. NEXIUM 40 MG (ESOMEPRAZOLE) [Concomitant]
  12. ATORVASTATIN TABLET [Concomitant]
  13. ACARBOSE TABLET [Concomitant]
  14. CALCIUM CARBONATE TABLETS [Concomitant]
  15. CYCLOBENZAPRINE TABLET [Concomitant]
  16. ASPIRIN [Concomitant]

REACTIONS (3)
  - GASTRITIS [None]
  - GASTRIC POLYPS [None]
  - NEUROENDOCRINE TUMOUR [None]
